FAERS Safety Report 9440161 (Version 2)
Quarter: 2013Q3

REPORT INFORMATION
  Report Type: Spontaneous
  Country: DE (occurrence: DE)
  Receive Date: 20130805
  Receipt Date: 20130807
  Transmission Date: 20140515
  Serious: Yes (Other)
  Sender: FDA-Public Use
  Company Number: PHHY2013DE080032

PATIENT
  Sex: Female

DRUGS (2)
  1. FEMARA [Suspect]
     Indication: BREAST CANCER
     Dosage: 2.5 MG, DAILY
     Route: 048
     Dates: start: 2008
  2. GLIVEC [Suspect]
     Indication: CHRONIC MYELOID LEUKAEMIA
     Dosage: 400 MG, PER DAY
     Route: 048
     Dates: start: 201304

REACTIONS (3)
  - Chronic myeloid leukaemia [Not Recovered/Not Resolved]
  - Second primary malignancy [Not Recovered/Not Resolved]
  - Thrombocytopenia [Not Recovered/Not Resolved]
